FAERS Safety Report 6211069-6 (Version None)
Quarter: 2009Q2

REPORT INFORMATION
  Report Type: 
  Country: None (occurrence: None)
  Receive Date: 20090602
  Receipt Date: 20090527
  Transmission Date: 20091009
  Serious: Yes (Other)
  Sender: FDA-Public Use
  Company Number: US-BAYER-200919144NA

PATIENT
  Age: 46 Year
  Sex: Female
  Weight: 70 kg

DRUGS (2)
  1. CIPRO [Suspect]
     Indication: URINARY TRACT INFECTION
     Dosage: TOTAL DAILY DOSE: 1000 MG  UNIT DOSE: 500 MG
     Route: 048
  2. ALLEGRA [Concomitant]

REACTIONS (3)
  - PETECHIAE [None]
  - URTICARIA [None]
  - VASCULITIS [None]
